FAERS Safety Report 7805658-2 (Version None)
Quarter: 2011Q4

REPORT INFORMATION
  Report Type: 
  Country: None (occurrence: None)
  Receive Date: 20111010
  Receipt Date: 20111007
  Transmission Date: 20120403
  Serious: Yes (Other)
  Sender: FDA-Public Use
  Company Number: JP-BRISTOL-MYERS SQUIBB COMPANY-16076796

PATIENT
  Age: 34 Year
  Sex: Female

DRUGS (2)
  1. KENACORT [Suspect]
     Dosage: NO OF COURSE:1
  2. METHYLPREDNISOLONE ACETATE [Suspect]
     Dosage: NO OF COURSE:1

REACTIONS (5)
  - RESTLESSNESS [None]
  - EYE INFLAMMATION [None]
  - RETINAL DETACHMENT [None]
  - CATARACT [None]
  - MALAISE [None]
